FAERS Safety Report 5610749-0 (Version None)
Quarter: 2008Q1

REPORT INFORMATION
  Report Type: 
  Country: None (occurrence: None)
  Receive Date: 20080201
  Receipt Date: 20080123
  Transmission Date: 20080703
  Serious: Yes (Hospitalization)
  Sender: FDA-Public Use
  Company Number: PHRM2008FR00707

PATIENT
  Age: 18 Year
  Sex: Male

DRUGS (1)
  1. LIORESAL [Suspect]
     Dosage: 10 MG, TID
     Route: 048
     Dates: start: 20080101, end: 20080123

REACTIONS (3)
  - DISSOCIATIVE IDENTITY DISORDER [None]
  - INCOHERENT [None]
  - INSOMNIA [None]
